FAERS Safety Report 7324774-5 (Version None)
Quarter: 2011Q1

REPORT INFORMATION
  Report Type: 
  Country: None (occurrence: None)
  Receive Date: 20110301
  Receipt Date: 20110216
  Transmission Date: 20110831
  Serious: Yes (Other)
  Sender: FDA-Public Use
  Company Number: SG-BAYER-2011-015241

PATIENT
  Age: 35 Year
  Sex: Male

DRUGS (3)
  1. IBUPROFEN [Suspect]
  2. PARACETAMOL [Suspect]
  3. ASPIRIN [Suspect]

REACTIONS (1)
  - PERIORBITAL OEDEMA [None]
